FAERS Safety Report 24048920 (Version 1)
Quarter: 2024Q3

REPORT INFORMATION
  Report Type: Spontaneous
  Country: US (occurrence: US)
  Receive Date: 20240704
  Receipt Date: 20240704
  Transmission Date: 20241016
  Serious: Yes (Other)
  Sender: INFORLIFE
  Company Number: US-INFO-20240173

PATIENT
  Age: 70 Year
  Sex: Male

DRUGS (2)
  1. NOREPINEPHRINE BITARTRATE IN SODIUM CHLORIDE [Suspect]
     Active Substance: NOREPINEPHRINE BITARTRATE
     Dosage: AUG-2025 ()
  2. SODIUM BICARBONATE [Concomitant]
     Active Substance: SODIUM BICARBONATE
     Dosage: ()
     Route: 041

REACTIONS (2)
  - Product packaging issue [Unknown]
  - No adverse event [Unknown]
